FAERS Safety Report 8617248 (Version 3)
Quarter: 2013Q1

REPORT INFORMATION
  Report Type: Report from Study
  Country: FI (occurrence: FI)
  Receive Date: 20120615
  Receipt Date: 20130304
  Transmission Date: 20140127
  Serious: Yes (Hospitalization)
  Sender: FDA-Public Use
  Company Number: FI-SANOFI-AVENTIS-2012SA028460

PATIENT
  Age: 58 Year
  Sex: Male
  Weight: 113 kg

DRUGS (13)
  1. CABAZITAXEL [Suspect]
     Indication: PROSTATE CANCER
     Route: 042
     Dates: start: 20110316, end: 20110316
  2. CABAZITAXEL [Suspect]
     Indication: PROSTATE CANCER
     Route: 042
     Dates: start: 20120403, end: 20120403
  3. CABAZITAXEL [Suspect]
     Indication: PROSTATE CANCER
     Route: 042
     Dates: start: 20120503, end: 20120503
  4. PREDNISOLONE [Suspect]
     Dates: start: 20100422
  5. LASIX RETARD [Concomitant]
     Route: 065
  6. CALCICHEW-D3 [Concomitant]
     Route: 065
  7. FELODIPINE [Concomitant]
     Route: 065
  8. XATRAL CR [Concomitant]
     Route: 065
  9. ZOLADEX [Concomitant]
     Route: 065
  10. ANDROCUR [Concomitant]
     Route: 065
  11. BURANA [Concomitant]
     Route: 065
  12. NEXIUM /UNK/ [Concomitant]
  13. SELOCOMP ZOC [Concomitant]

REACTIONS (5)
  - Leukopenia [Recovered/Resolved]
  - Neutropenia [Recovered/Resolved]
  - Pneumonia [Recovered/Resolved]
  - Haematuria [Recovered/Resolved]
  - Venous thrombosis limb [Recovering/Resolving]
